FAERS Safety Report 7956138-5 (Version None)
Quarter: 2011Q4

REPORT INFORMATION
  Report Type: 
  Country: None (occurrence: None)
  Receive Date: 20111205
  Receipt Date: 20111130
  Transmission Date: 20120403
  Serious: Yes (Hospitalization)
  Sender: FDA-Public Use
  Company Number: DK-AMGEN-DNKSP2011063643

PATIENT
  Age: 62 Year
  Sex: Male
  Weight: 108 kg

DRUGS (12)
  1. PREDNISONE TAB [Suspect]
     Indication: DIFFUSE LARGE B-CELL LYMPHOMA
     Dosage: 100 MG, UNK
     Route: 048
     Dates: start: 20111103
  2. VINCRISTINE [Suspect]
     Indication: DIFFUSE LARGE B-CELL LYMPHOMA
     Dosage: 20 MG, UNK
     Route: 042
     Dates: start: 20111103
  3. SULFAMETHOXAZOLE [Concomitant]
     Indication: INFECTION
     Dosage: UNK
     Route: 048
     Dates: start: 20111015, end: 20111029
  4. AMOXICILLIN AND CLAVULANATE POTASSIUM [Concomitant]
     Indication: INFECTION
     Dosage: UNK
     Route: 048
     Dates: start: 20111018, end: 20111025
  5. FLUCONAZOLE [Concomitant]
     Indication: INFECTION
     Dosage: 200 MG, QD
     Route: 048
     Dates: start: 20111018, end: 20111025
  6. NEUPOGEN [Suspect]
     Indication: DIFFUSE LARGE B-CELL LYMPHOMA
     Dosage: 60 MG, UNK
     Route: 058
     Dates: start: 20111106
  7. DOXORUBICIN HCL [Suspect]
     Indication: DIFFUSE LARGE B-CELL LYMPHOMA
     Dosage: 119 MG, UNK
     Route: 042
     Dates: start: 20111103
  8. MEROPENEM [Concomitant]
     Indication: INFECTION
     Dosage: 1000 MG, Q8H
     Route: 042
     Dates: start: 20111030, end: 20111104
  9. FUCIDINE                           /00065701/ [Concomitant]
     Indication: INFECTION
     Dosage: 500 MG, Q8H
     Route: 048
     Dates: start: 20111018, end: 20111104
  10. RITUXIMAB [Suspect]
     Indication: DIFFUSE LARGE B-CELL LYMPHOMA
     Dosage: 750 MG, UNK
     Route: 042
     Dates: start: 20111103
  11. CEFUROXIME [Concomitant]
     Indication: INFECTION
     Dosage: 1500 MG, Q8H
     Route: 042
     Dates: start: 20111014, end: 20111018
  12. CYCLOPHOSPHAMIDE [Suspect]
     Indication: DIFFUSE LARGE B-CELL LYMPHOMA
     Dosage: 1800 MG, UNK
     Route: 042
     Dates: start: 20111103

REACTIONS (1)
  - INFECTION [None]
